FAERS Safety Report 18791672 (Version 1)
Quarter: 2021Q1

REPORT INFORMATION
  Report Type: Spontaneous
  Country: US (occurrence: US)
  Receive Date: 20210127
  Receipt Date: 20210127
  Transmission Date: 20210419
  Serious: Yes (Death)
  Sender: FDA-Public Use
  Company Number: US-ROCHE-2755370

PATIENT
  Age: 57 Year
  Sex: Male
  Weight: 67.65 kg

DRUGS (2)
  1. AVASTIN [Suspect]
     Active Substance: BEVACIZUMAB
     Indication: HEPATOCELLULAR CARCINOMA
     Route: 042
     Dates: start: 20201014, end: 20201104
  2. TECENTRIQ [Suspect]
     Active Substance: ATEZOLIZUMAB
     Indication: HEPATOCELLULAR CARCINOMA
     Route: 042
     Dates: start: 20201014, end: 20201104

REACTIONS (10)
  - Dizziness [Recovered/Resolved]
  - Brain injury [Fatal]
  - Respiratory failure [Fatal]
  - Haemoptysis [Recovered/Resolved]
  - Nausea [Unknown]
  - Pain [Unknown]
  - Feeling cold [Recovered/Resolved]
  - Cardiac failure [Fatal]
  - Renal injury [Fatal]
  - Vomiting [Recovered/Resolved]

NARRATIVE: CASE EVENT DATE: 20201111
